FAERS Safety Report 4961836-1 (Version None)
Quarter: 2006Q2

REPORT INFORMATION
  Report Type: 
  Country: None (occurrence: None)
  Receive Date: 20060404
  Receipt Date: 20060223
  Transmission Date: 20061013
  Serious: Yes (Hospitalization, Other)
  Sender: FDA-Public Use
  Company Number: DE-GLAXOSMITHKLINE-D0048835A

PATIENT
  Age: 4 Month
  Sex: Male
  Weight: 7 kg

DRUGS (2)
  1. ZOVIRAX [Suspect]
     Indication: VARICELLA
     Route: 042
     Dates: start: 20060220
  2. INFUSION [Concomitant]
     Route: 042

REACTIONS (2)
  - APPLICATION SITE REACTION [None]
  - PLEURAL EFFUSION [None]
